FAERS Safety Report 6789719-5 (Version None)
Quarter: 2010Q2

REPORT INFORMATION
  Report Type: 
  Country: None (occurrence: None)
  Receive Date: 20100624
  Receipt Date: 20100621
  Transmission Date: 20101027
  Serious: Yes (Other)
  Sender: FDA-Public Use
  Company Number: US-CEPHALON-2010003009

PATIENT
  Sex: Male

DRUGS (3)
  1. PROVIGIL [Suspect]
     Indication: NARCOLEPSY
     Route: 048
     Dates: start: 20100528
  2. MORPHINE [Concomitant]
     Indication: BACK PAIN
  3. VICODIN [Concomitant]
     Indication: BACK PAIN

REACTIONS (4)
  - DRUG INEFFECTIVE [None]
  - RASH PUSTULAR [None]
  - SKIN HAEMORRHAGE [None]
  - URTICARIA [None]
